FAERS Safety Report 10232878 (Version 2)
Quarter: 2014Q3

REPORT INFORMATION
  Report Type: Spontaneous
  Country: US (occurrence: None)
  Receive Date: 20140610
  Receipt Date: 20140701
  Transmission Date: 20150326
  Serious: Yes (Other)
  Sender: FDA-Public Use
  Company Number: 20140304

PATIENT
  Age: 76 Year
  Sex: Female

DRUGS (4)
  1. HYDRALAZINE HCL [Suspect]
     Active Substance: HYDRALAZINE HYDROCHLORIDE
     Indication: HYPERTENSION
     Dosage: 50 MG 3 TIMES A DAY UNKNOWN
  2. LISINOPRIL. [Concomitant]
     Active Substance: LISINOPRIL
  3. HYDROCHLORTHIAZIDE [Concomitant]
     Active Substance: HYDROCHLOROTHIAZIDE
  4. AMLODIPINE [Concomitant]
     Active Substance: AMLODIPINE BESYLATE

REACTIONS (4)
  - Glomerulonephritis [None]
  - Lupus-like syndrome [None]
  - Vasculitis [None]
  - Anaemia of chronic disease [None]
